FAERS Safety Report 14751578 (Version 4)
Quarter: 2019Q3

REPORT INFORMATION
  Report Type: Spontaneous
  Country: US (occurrence: US)
  Receive Date: 20180412
  Receipt Date: 20190926
  Transmission Date: 20191004
  Serious: Yes (Other)
  Sender: FDA-Public Use
  Company Number: US-GLAXOSMITHKLINE-US2018GSK061888

PATIENT
  Sex: Male

DRUGS (2)
  1. PREVACID [Suspect]
     Active Substance: LANSOPRAZOLE
     Indication: PRODUCT USED FOR UNKNOWN INDICATION
     Dosage: UNK
     Route: 065
  2. PREVACID [Suspect]
     Active Substance: LANSOPRAZOLE
     Indication: GASTROOESOPHAGEAL REFLUX DISEASE
     Dosage: 30 MG, QD
     Route: 065

REACTIONS (15)
  - Pyelonephritis [Unknown]
  - Polyuria [Unknown]
  - Diabetic nephropathy [Unknown]
  - Haematuria [Unknown]
  - Proteinuria [Unknown]
  - Urinary retention [Unknown]
  - Dysuria [Unknown]
  - Urinary hesitation [Unknown]
  - Chronic kidney disease [Not Recovered/Not Resolved]
  - Renal injury [Unknown]
  - Renal impairment [Unknown]
  - Urinary incontinence [Unknown]
  - Pollakiuria [Unknown]
  - Renal failure [Unknown]
  - Microalbuminuria [Unknown]
